FAERS Safety Report 8165976-8 (Version None)
Quarter: 2012Q1

REPORT INFORMATION
  Report Type: 
  Country: None (occurrence: None)
  Receive Date: 20120227
  Receipt Date: 20120203
  Transmission Date: 20120608
  Serious: No
  Sender: FDA-Public Use
  Company Number: US-MYLANLABS-2011S1026388

PATIENT
  Age: 16 Year

DRUGS (1)
  1. AMNESTEEM [Suspect]
     Indication: ACNE CYSTIC
     Route: 048

REACTIONS (8)
  - NAUSEA [None]
  - IRRITABILITY [None]
  - HEADACHE [None]
  - AGGRESSION [None]
  - DIARRHOEA [None]
  - VOMITING [None]
  - FATIGUE [None]
  - DIZZINESS [None]
